FAERS Safety Report 7454991-5 (Version None)
Quarter: 2011Q2

REPORT INFORMATION
  Report Type: 
  Country: None (occurrence: None)
  Receive Date: 20110503
  Receipt Date: 20110426
  Transmission Date: 20111010
  Serious: Yes (Other)
  Sender: FDA-Public Use
  Company Number: JP-SANOFI-AVENTIS-2011SA026028

PATIENT
  Age: 66 Year
  Sex: Female

DRUGS (4)
  1. CELECOX [Suspect]
     Route: 048
  2. METHYCOBAL [Concomitant]
  3. MYSLEE [Suspect]
     Route: 048
  4. GASTER [Suspect]
     Route: 048

REACTIONS (2)
  - HEPATIC ENZYME INCREASED [None]
  - PANCYTOPENIA [None]
